FAERS Safety Report 5468702-6 (Version None)
Quarter: 2007Q3

REPORT INFORMATION
  Report Type: 
  Country: None (occurrence: None)
  Receive Date: 20070926
  Receipt Date: 20070914
  Transmission Date: 20080115
  Serious: Yes (Hospitalization)
  Sender: FDA-Public Use
  Company Number: JP-PFIZER INC-2007078102

PATIENT
  Age: 75 Year
  Sex: Male

DRUGS (3)
  1. AZULFIDINE EN-TABS [Suspect]
     Indication: RHEUMATOID ARTHRITIS
     Dosage: DAILY DOSE:1500MG
     Route: 048
     Dates: start: 20070201, end: 20070827
  2. PREDNISOLONE [Concomitant]
     Dosage: DAILY DOSE:7.5MG
  3. MUCOSTA [Concomitant]
     Dosage: DAILY DOSE:200MG
     Route: 048

REACTIONS (1)
  - TOXIC SKIN ERUPTION [None]
